FAERS Safety Report 7439161-9 (Version None)
Quarter: 2011Q2

REPORT INFORMATION
  Report Type: 
  Country: None (occurrence: None)
  Receive Date: 20110427
  Receipt Date: 20110413
  Transmission Date: 20111010
  Serious: Yes (Other)
  Sender: FDA-Public Use
  Company Number: US-RANBAXY-2011US-43870

PATIENT
  Sex: Female

DRUGS (4)
  1. OXCARBAZEPINE [Suspect]
     Indication: EPILEPSY
     Dosage: PRECONCEPTION THROUGHOUT PREGNANCY
     Route: 065
  2. LAMOTRIGINE [Suspect]
     Dosage: 400 MG/ DAY WK 11-22
     Route: 065
  3. LAMOTRIGINE [Suspect]
     Indication: EPILEPSY
     Dosage: 250 MG/ DAY WK 7-11
     Route: 065
  4. LAMOTRIGINE [Suspect]
     Dosage: 600 MG/ DAY WK 22 THROUGHOUT DELIVERY
     Route: 065

REACTIONS (4)
  - CONGENITAL ANOMALY IN OFFSPRING [None]
  - DRUG EXPOSURE DURING PREGNANCY [None]
  - DRUG EXPOSURE BEFORE PREGNANCY [None]
  - PREGNANCY [None]
